FAERS Safety Report 4644177-1 (Version None)
Quarter: 2005Q2

REPORT INFORMATION
  Report Type: 
  Country: None (occurrence: None)
  Receive Date: 20050425
  Receipt Date: 20050415
  Transmission Date: 20051028
  Serious: Yes (Other)
  Sender: FDA-Public Use
  Company Number: CA-ABBOTT-05P-028-0297669-00

PATIENT
  Sex: Male
  Weight: 90 kg

DRUGS (12)
  1. HUMIRA [Suspect]
     Indication: ANKYLOSING SPONDYLITIS
     Dosage: 40 MG
     Route: 058
     Dates: start: 20040324, end: 20040825
  2. HUMIRA [Suspect]
     Route: 058
     Dates: start: 20040908, end: 20050413
  3. ATENOLOL [Concomitant]
     Indication: HYPERTENSION
     Dates: start: 20041229
  4. ATENOLOL [Concomitant]
     Dates: start: 20000101
  5. CORBOCAL [Concomitant]
     Indication: OSTEOPENIA
     Dates: start: 20020901
  6. VENLAFAXINE HCL [Concomitant]
     Indication: ANKYLOSING SPONDYLITIS
     Dates: start: 20040209
  7. PARACETAMOL [Concomitant]
     Indication: ANKYLOSING SPONDYLITIS
     Dates: start: 19800101
  8. ISOSORBIDE DINITRATE [Concomitant]
     Indication: ANGINA PECTORIS
     Dates: start: 20000101
  9. TELMISARTAN [Concomitant]
     Indication: HYPERTENSION
     Dates: start: 20000101
  10. ARTHROTEC [Concomitant]
     Indication: ANKYLOSING SPONDYLITIS
     Dates: start: 20030901
  11. PANTOPRAZOLE SODIUM [Concomitant]
     Indication: DYSPEPSIA
     Dates: start: 20020301
  12. CODEINE CONTIN [Concomitant]
     Indication: ANKYLOSING SPONDYLITIS
     Dates: start: 20000503

REACTIONS (1)
  - LYMPHANGIOMA [None]
